FAERS Safety Report 21353650 (Version 1)
Quarter: 2022Q3

REPORT INFORMATION
  Report Type: Report from Study
  Country: US (occurrence: US)
  Receive Date: 20220920
  Receipt Date: 20220920
  Transmission Date: 20221027
  Serious: No
  Sender: FDA-Public Use
  Company Number: US-ABBVIE-4127691

PATIENT
  Sex: Female

DRUGS (1)
  1. HUMIRA [Suspect]
     Active Substance: ADALIMUMAB
     Indication: Crohn^s disease
     Dosage: CF
     Route: 058

REACTIONS (5)
  - Injection site pain [Recovered/Resolved]
  - Injection site pruritus [Recovered/Resolved]
  - Injection site bruising [Recovered/Resolved]
  - Injection site urticaria [Recovered/Resolved]
  - Injection site pain [Recovered/Resolved]
